FAERS Safety Report 7530952-2 (Version None)
Quarter: 2011Q2

REPORT INFORMATION
  Report Type: 
  Country: None (occurrence: None)
  Receive Date: 20110531
  Receipt Date: 20110516
  Transmission Date: 20111010
  Serious: Yes (Other)
  Sender: FDA-Public Use
  Company Number: FK201100979

PATIENT
  Age: 4 Year
  Sex: Male

DRUGS (7)
  1. DEXAMETHASONE SODIUM PHOSPHATE INJECTION, USP (DEXAMETHASONE SODIUM PH [Suspect]
     Indication: CHEMOTHERAPY
     Dosage: 8 MG/M2, D 1-8 AND 15-21 , INTRAVENOUS (NOT OTHERWISE SPECIFIED)
     Route: 042
  2. EPIRUBICIN (EPIRUBUCIN) [Suspect]
     Indication: CHEMOTHERAPY
     Dosage: 30 MG/M2, DAYS 1 AND 8, INTRAVENOUS (NOT OTHERWISE SPECIFIED)
     Route: 042
  3. METHOTREXATE [Concomitant]
  4. L-ASPARAGINASE (ASPARAGINASE) [Suspect]
     Indication: CHEMOTHERAPY
     Dosage: 5000 KU, PER M2,QUEVERY OTHER DAY X9 DOSES, INTRAVENOUS (NOT OTHERWISE SPECIFIED)
     Route: 042
  5. HYDROCORTONE [Concomitant]
  6. VINCRISTINE [Suspect]
     Indication: CHEMOTHERAPY
     Dosage: 1.5 MG/M2, DAYS 1, 8 AND 15, INTRAVENOUS (NOT OTHERWISE SPECIFIED)
     Route: 042
  7. CYTARABINE [Concomitant]

REACTIONS (5)
  - CEREBRAL VENOUS THROMBOSIS [None]
  - HEMIPARESIS [None]
  - SUPERIOR SAGITTAL SINUS THROMBOSIS [None]
  - GRAND MAL CONVULSION [None]
  - STATUS EPILEPTICUS [None]
